FAERS Safety Report 9373540 (Version 1)
Quarter: 2013Q2

REPORT INFORMATION
  Report Type: Report from Study
  Country: US (occurrence: US)
  Receive Date: 20130627
  Receipt Date: 20130627
  Transmission Date: 20140414
  Serious: Yes (Hospitalization)
  Sender: FDA-Public Use
  Company Number: US-SANOFI-AVENTIS-2013SA064446

PATIENT
  Sex: Male
  Weight: 93.9 kg

DRUGS (9)
  1. ELOXATIN [Suspect]
     Indication: COLORECTAL CANCER
     Dosage: START DATE OF FIRST COURSE ?65 MG/MM2?15 Q28DAYS
     Route: 041
     Dates: start: 20110510, end: 20110510
  2. ELOXATIN [Suspect]
     Indication: COLORECTAL CANCER
     Dosage: TOTAL DOSE ADMINISTERED THIS COURSE - 276 MG
     Route: 041
     Dates: start: 20110705, end: 20110705
  3. ELOXATIN [Suspect]
     Indication: COLORECTAL CANCER
     Dosage: TOTAL DOSE ADMINISTERED THIS COURSE - 276 MG
     Route: 041
     Dates: start: 20110719, end: 20110719
  4. BEVACIZUMAB [Suspect]
     Indication: COLORECTAL CANCER
     Dosage: 15 Q28 DAYS ?START DATE OF FIRST COURSE
     Route: 042
     Dates: start: 20110510, end: 20110510
  5. BEVACIZUMAB [Suspect]
     Indication: COLORECTAL CANCER
     Dosage: TOTAL DOSE ADMINISTERED - 920 MG
     Route: 042
     Dates: start: 20110705, end: 20110705
  6. BEVACIZUMAB [Suspect]
     Indication: COLORECTAL CANCER
     Dosage: TOTAL DOSE ADMINISTERED - 920 MG
     Route: 042
     Dates: start: 20110719, end: 20110719
  7. IRINOTECAN [Suspect]
     Indication: COLORECTAL CANCER
     Dosage: 128 MG/MM2 ?15 Q28 DAYS?START DATE OF FIRST COURSE
     Route: 042
     Dates: start: 20110510, end: 20110510
  8. IRINOTECAN [Suspect]
     Indication: COLORECTAL CANCER
     Dosage: TOTAL DOSE ADMINISTERED - 510 MG
     Route: 042
     Dates: start: 20110705, end: 20110705
  9. IRINOTECAN [Suspect]
     Indication: COLORECTAL CANCER
     Dosage: TOTAL DOSE ADMINISTERED - 510 MG
     Route: 042
     Dates: start: 20110719, end: 20110719

REACTIONS (3)
  - Abdominal distension [Not Recovered/Not Resolved]
  - Colitis [Not Recovered/Not Resolved]
  - Large intestinal obstruction [Not Recovered/Not Resolved]
